FAERS Safety Report 4306954-6 (Version None)
Quarter: 2004Q1

REPORT INFORMATION
  Report Type: 
  Country: None (occurrence: None)
  Receive Date: 20040225
  Receipt Date: 20040209
  Transmission Date: 20041129
  Serious: No
  Sender: FDA-Public Use
  Company Number: B0323343A

PATIENT
  Age: 31 Year
  Sex: Male

DRUGS (1)
  1. EPIVIR [Suspect]
     Indication: HEPATITIS B

REACTIONS (3)
  - DRUG RESISTANCE [None]
  - HEPATIC FAILURE [None]
  - LIVER TRANSPLANT [None]
